FAERS Safety Report 18092062 (Version 41)
Quarter: 2023Q1

REPORT INFORMATION
  Report Type: Report from Study
  Country: GB (occurrence: GB)
  Receive Date: 20200730
  Receipt Date: 20230324
  Transmission Date: 20230418
  Serious: Yes (Death, Hospitalization, Other)
  Sender: FDA-Public Use
  Company Number: None

PATIENT
  Age: 33 Year
  Sex: Female

DRUGS (234)
  1. DOCETAXEL [Suspect]
     Active Substance: DOCETAXEL
     Indication: Product used for unknown indication
     Dosage: 500 MG, BID
     Route: 042
     Dates: start: 20161021
  2. ANASTROZOLE [Suspect]
     Active Substance: ANASTROZOLE
     Indication: Breast cancer metastatic
     Dosage: 1 MILLIGRAM, QD
     Route: 048
     Dates: start: 20180606, end: 20190904
  3. PERTUZUMAB [Suspect]
     Active Substance: PERTUZUMAB
     Indication: HER2 positive breast cancer
     Dosage: LOADING DOSE,ALSO RECEIVED AS 840 MG FROM 09-JUN-2016.
     Route: 042
     Dates: start: 20160701, end: 20171228
  4. TAMOXIFEN [Suspect]
     Active Substance: TAMOXIFEN
     Indication: HER2 positive breast cancer
     Dosage: 20 MG, 1X/DAY
     Route: 048
     Dates: start: 20170623, end: 20171228
  5. TRASTUZUMAB [Suspect]
     Active Substance: TRASTUZUMAB
     Indication: HER2 positive breast cancer
     Dosage: LOADING DOSE, ALSO RECEIVED AS 420 MG FROM 01-JUL-2016.
     Dates: start: 20160609, end: 20160609
  6. TRASTUZUMAB [Suspect]
     Active Substance: TRASTUZUMAB
     Indication: Product used for unknown indication
     Dosage: 452 MG, ONCE EVERY 3 WK, FOR ALL REGIMEN: 113967 MG CUMULATIVE DOSE
     Route: 042
     Dates: start: 20161119, end: 20170519
  7. ADO-TRASTUZUMAB EMTANSINE [Suspect]
     Active Substance: ADO-TRASTUZUMAB EMTANSINE
     Indication: HER2 positive breast cancer
     Dosage: 280 MG
     Dates: start: 20180131, end: 20180131
  8. SALINE [Concomitant]
     Active Substance: SODIUM CHLORIDE
     Dosage: 5 ML, EVERY 4 WEEKS
     Route: 055
     Dates: start: 20170616, end: 20170623
  9. METOCLOPRAMIDE [Concomitant]
     Active Substance: METOCLOPRAMIDE
     Dosage: 10 MILLIGRAM
     Route: 048
     Dates: start: 20160610, end: 20161111
  10. HYDROCORTISONE [Concomitant]
     Active Substance: HYDROCORTISONE
     Dosage: 100 MILLIGRAM
     Route: 042
     Dates: start: 20160907, end: 20160907
  11. ENOXAPARIN [Concomitant]
     Active Substance: ENOXAPARIN
     Dosage: UNK, QD
     Route: 058
     Dates: start: 20180214, end: 20180218
  12. MORPHINE SULFATE [Concomitant]
     Active Substance: MORPHINE SULFATE
     Dosage: ALSO RECEIVED: 3 MG
     Route: 048
     Dates: start: 20160828
  13. RANITIDINE [Concomitant]
     Active Substance: RANITIDINE
     Dosage: 50 MG
     Route: 048
     Dates: start: 20170617, end: 20170618
  14. ALBUTEROL [Concomitant]
     Active Substance: ALBUTEROL
     Dosage: UNK
     Route: 055
     Dates: start: 20160822, end: 20160908
  15. CALCIUM CARBONATE\CHOLECALCIFEROL [Concomitant]
     Active Substance: CALCIUM CARBONATE\CHOLECALCIFEROL
     Dosage: 0.5 DAY
     Route: 048
     Dates: start: 20170621
  16. MEROPENEM [Concomitant]
     Active Substance: MEROPENEM
     Route: 042
     Dates: start: 20160809, end: 20160817
  17. AMOXICILLIN [Concomitant]
     Active Substance: AMOXICILLIN
     Dosage: UNK, QD
     Route: 048
     Dates: start: 201712, end: 201712
  18. CODEINE PHOSPHATE [Concomitant]
     Active Substance: CODEINE PHOSPHATE
     Dosage: UNK
     Route: 048
     Dates: start: 20170619, end: 20170619
  19. LEVETIRACETAM [Concomitant]
     Active Substance: LEVETIRACETAM
     Route: 042
     Dates: start: 20170616, end: 20170616
  20. ZOPICLONE [Concomitant]
     Active Substance: ZOPICLONE
     Dosage: 3.75 MILLIGRAM
     Route: 048
     Dates: start: 20170618, end: 20170619
  21. SULFAMETHOXAZOLE\TRIMETHOPRIM [Concomitant]
     Active Substance: SULFAMETHOXAZOLE\TRIMETHOPRIM
     Dosage: 2112 MG
     Route: 042
     Dates: start: 20160811, end: 20160816
  22. CHLORPHENIRAMINE MALEATE [Concomitant]
     Active Substance: CHLORPHENIRAMINE MALEATE
     Dosage: 10 MILLIGRAM
     Route: 042
     Dates: start: 20160928, end: 20170724
  23. COTRIMOXAZOLE [Concomitant]
     Active Substance: SULFAMETHOXAZOLE\TRIMETHOPRIM
     Dosage: 483 MG
     Route: 048
     Dates: start: 20180131, end: 20180131
  24. LEVOMEPROMAZINE [Concomitant]
     Active Substance: LEVOMEPROMAZINE
     Dosage: 6.25 MG
     Route: 058
     Dates: start: 20170617, end: 20170617
  25. FILGRASTIM [Concomitant]
     Active Substance: FILGRASTIM
     Dosage: 300 MICROGRAM
     Route: 058
     Dates: start: 20160731, end: 20161112
  26. ENOXAPARIN SODIUM [Concomitant]
     Active Substance: ENOXAPARIN SODIUM
     Dosage: 110 MG, 1X/DAY
     Route: 058
     Dates: start: 20160825, end: 20160914
  27. CODEINE [Concomitant]
     Active Substance: CODEINE
     Dosage: 10 MG
     Route: 048
     Dates: start: 20170619, end: 20170619
  28. SENNA [Concomitant]
     Active Substance: SENNA LEAF\SENNOSIDES\SENNOSIDES A AND B
     Dosage: 15 MILLIGRAM, QD
     Route: 048
     Dates: start: 20160722, end: 20161011
  29. CIPROFLOXACIN [Concomitant]
     Active Substance: CIPROFLOXACIN
     Dates: start: 20161001, end: 20161001
  30. CLARITHROMYCIN LACTOBIONATE [Concomitant]
     Active Substance: CLARITHROMYCIN LACTOBIONATE
     Route: 048
     Dates: start: 20180214, end: 20180301
  31. AMOXICILLIN\CLAVULANATE POTASSIUM [Concomitant]
     Active Substance: AMOXICILLIN\CLAVULANATE POTASSIUM
     Dosage: 625 MILLIGRAM 3/DAY
     Dates: start: 20180215, end: 20180301
  32. CYCLIZINE [Concomitant]
     Active Substance: CYCLIZINE
     Dosage: 50 MILLIGRAM 3/DAY, 150 MILLIGRAM, QD
     Route: 048
     Dates: start: 20170902
  33. DEXAMETHASONE [Concomitant]
     Active Substance: DEXAMETHASONE
     Dosage: 8 MILLIGRAM, QD
     Route: 042
     Dates: start: 20160803, end: 20160805
  34. BENZYDAMINE [Concomitant]
     Active Substance: BENZYDAMINE
     Dates: start: 20160722, end: 20160723
  35. DOCUSATE SODIUM [Concomitant]
     Active Substance: DOCUSATE SODIUM
     Dosage: 20 MILLIGRAM, QD
     Dates: start: 20160722, end: 20160724
  36. GENTAMICIN [Concomitant]
     Active Substance: GENTAMICIN
     Route: 042
     Dates: start: 20180212, end: 20180212
  37. LANSOPRAZOLE [Concomitant]
     Active Substance: LANSOPRAZOLE
     Route: 048
     Dates: start: 20160809
  38. LEVOFLOXACIN [Concomitant]
     Active Substance: LEVOFLOXACIN
     Dates: start: 20161009, end: 20161017
  39. ONDANSETRON [Concomitant]
     Active Substance: ONDANSETRON
     Indication: Vomiting
     Dosage: 8 MILLIGRAM 3/D
     Route: 048
     Dates: start: 20170902
  40. OSELTAMIVIR [Concomitant]
     Active Substance: OSELTAMIVIR
     Dosage: 15 MILLIGRAM, BID
     Route: 048
     Dates: start: 20180213, end: 20180217
  41. ACETAMINOPHEN [Concomitant]
     Active Substance: ACETAMINOPHEN
     Route: 048
     Dates: start: 20160803
  42. RAMIPRIL [Concomitant]
     Active Substance: RAMIPRIL
     Dosage: 2.3 MILLIGRAM, QD
     Route: 048
     Dates: start: 20160722, end: 20161011
  43. PIPERACILLIN SODIUM\TAZOBACTAM SODIUM [Concomitant]
     Active Substance: PIPERACILLIN SODIUM\TAZOBACTAM SODIUM
     Dosage: 13.5 G, QD, 3 TIMES A DAY
     Dates: start: 20180212, end: 20180214
  44. TRIMETHOPRIM [Concomitant]
     Active Substance: TRIMETHOPRIM
     Dosage: 50 MILLIGRAM, TID
     Route: 048
     Dates: start: 20170902
  45. VANCOMYCIN [Concomitant]
     Active Substance: VANCOMYCIN
     Route: 048
     Dates: start: 20161009, end: 20161009
  46. LEVETIRACETAM [Concomitant]
     Active Substance: LEVETIRACETAM
     Dosage: 500 MILLIGRAM, BID
     Route: 058
     Dates: start: 20170617
  47. DICLOFENAC POTASSIUM [Concomitant]
     Active Substance: DICLOFENAC POTASSIUM
     Dosage: UNK, 3X/DAY
     Route: 048
     Dates: start: 20160722, end: 20160723
  48. SODIUM CHLORIDE [Concomitant]
     Active Substance: SODIUM CHLORIDE
     Dosage: 5 MILLILITER, Q4WK
     Route: 055
     Dates: start: 20170616, end: 20170623
  49. PIPERACILLIN SODIUM [Concomitant]
     Active Substance: PIPERACILLIN SODIUM
     Indication: Product used for unknown indication
     Dosage: 4.5 MG TID, 14 MG
     Dates: start: 20180212, end: 20180214
  50. BENZYDAMINE HYDROCHLORIDE [Suspect]
     Active Substance: BENZYDAMINE HYDROCHLORIDE
     Indication: Product used for unknown indication
     Dates: start: 20160722, end: 20160723
  51. SALINE [Concomitant]
     Active Substance: SODIUM CHLORIDE
     Route: 042
     Dates: start: 20180105, end: 20180105
  52. SALINE [Concomitant]
     Active Substance: SODIUM CHLORIDE
     Route: 042
     Dates: start: 20180212, end: 20180214
  53. SALINE [Concomitant]
     Active Substance: SODIUM CHLORIDE
     Route: 042
     Dates: start: 20170616, end: 20170616
  54. LEVETIRACETAM [Concomitant]
     Active Substance: LEVETIRACETAM
     Dates: start: 20161009, end: 20161017
  55. CIPROFLOXACIN [Concomitant]
     Active Substance: CIPROFLOXACIN
     Dates: start: 20161009, end: 20161009
  56. METOCLOPRAMIDE [Concomitant]
     Active Substance: METOCLOPRAMIDE
     Dosage: 10 MILLIGRAM
     Route: 042
     Dates: start: 20180106, end: 20180106
  57. ENOXAPARIN SODIUM [Concomitant]
     Active Substance: ENOXAPARIN SODIUM
     Dosage: 40 MG, QD
     Route: 058
     Dates: start: 20170616, end: 20170623
  58. ENOXAPARIN SODIUM [Concomitant]
     Active Substance: ENOXAPARIN SODIUM
     Dosage: 120 MG
     Route: 058
     Dates: start: 20180212, end: 20180212
  59. ENOXAPARIN SODIUM [Concomitant]
     Active Substance: ENOXAPARIN SODIUM
     Dosage: 40 MG
     Dates: start: 20160817, end: 20160914
  60. ENOXAPARIN SODIUM [Concomitant]
     Active Substance: ENOXAPARIN SODIUM
     Dosage: 40 MG
     Route: 058
     Dates: start: 20180214, end: 20180214
  61. ENOXAPARIN [Concomitant]
     Active Substance: ENOXAPARIN
     Dosage: 50 MG, AS NEEDED
     Dates: start: 20170617, end: 20170618
  62. VANCOMYCIN [Concomitant]
     Active Substance: VANCOMYCIN
     Dates: start: 20181009, end: 20181009
  63. LEVOMEPROMAZINE [Concomitant]
     Active Substance: LEVOMEPROMAZINE
     Route: 058
  64. ALBUTEROL [Concomitant]
     Active Substance: ALBUTEROL
     Dates: start: 20160822, end: 20160908
  65. CLARITHROMYCIN LACTOBIONATE [Concomitant]
     Active Substance: CLARITHROMYCIN LACTOBIONATE
     Route: 048
     Dates: start: 20180301
  66. AMOXICILLIN\CLAVULANATE POTASSIUM [Concomitant]
     Active Substance: AMOXICILLIN\CLAVULANATE POTASSIUM
     Dates: start: 20180214, end: 20180214
  67. AMOXICILLIN\CLAVULANATE POTASSIUM [Concomitant]
     Active Substance: AMOXICILLIN\CLAVULANATE POTASSIUM
     Dates: start: 20180214, end: 20180214
  68. AMOXICILLIN\CLAVULANATE POTASSIUM [Concomitant]
     Active Substance: AMOXICILLIN\CLAVULANATE POTASSIUM
     Dates: start: 20180301
  69. AMOXICILLIN\CLAVULANATE POTASSIUM [Concomitant]
     Active Substance: AMOXICILLIN\CLAVULANATE POTASSIUM
     Dates: start: 20180215, end: 20180301
  70. AMOXICILLIN\CLAVULANATE POTASSIUM [Concomitant]
     Active Substance: AMOXICILLIN\CLAVULANATE POTASSIUM
     Route: 048
     Dates: start: 20180214, end: 20180214
  71. ENOXAPARIN [Concomitant]
     Active Substance: ENOXAPARIN
     Dosage: UNK, QD
     Route: 058
     Dates: start: 20180212, end: 20180212
  72. GENTAMICIN [Concomitant]
     Active Substance: GENTAMICIN
     Route: 042
     Dates: start: 20180212, end: 20180212
  73. GENTAMICIN [Concomitant]
     Active Substance: GENTAMICIN
     Route: 042
     Dates: start: 20180212, end: 20180212
  74. TRASTUZUMAB [Suspect]
     Active Substance: TRASTUZUMAB
     Indication: HER2 positive breast cancer
     Route: 042
     Dates: start: 20160202, end: 20160203
  75. PERTUZUMAB [Suspect]
     Active Substance: PERTUZUMAB
     Indication: HER2 positive breast cancer
     Dosage: LOADING DOSE,ALSO RECEIVED AS 840 MG FROM 09-JUN-2016.
     Route: 042
     Dates: start: 20160701, end: 20171228
  76. HYDROCORTISONE [Concomitant]
     Active Substance: HYDROCORTISONE
     Dosage: 100 MILLIGRAM
     Route: 042
     Dates: start: 20170617
  77. LEVETIRACETAM [Concomitant]
     Active Substance: LEVETIRACETAM
     Route: 042
     Dates: start: 20170908, end: 20170925
  78. LEVETIRACETAM [Concomitant]
     Active Substance: LEVETIRACETAM
     Route: 042
     Dates: start: 20170617
  79. ACETAMINOPHEN [Concomitant]
     Active Substance: ACETAMINOPHEN
     Route: 048
     Dates: start: 20160903
  80. SODIUM CHLORIDE [Concomitant]
     Active Substance: SODIUM CHLORIDE
     Dosage: 5 MILLILITER, Q4WK
     Route: 055
     Dates: start: 20180212, end: 20180214
  81. CIPROFLOXACIN [Concomitant]
     Active Substance: CIPROFLOXACIN
     Dosage: 15 MILLIGRAM, QD
     Route: 048
  82. AMOXICILLIN\CLAVULANATE POTASSIUM [Concomitant]
     Active Substance: AMOXICILLIN\CLAVULANATE POTASSIUM
     Dosage: 2.4 GRAM, QD
     Route: 048
     Dates: start: 20180214, end: 20180301
  83. AMOXICILLIN\CLAVULANATE POTASSIUM [Concomitant]
     Active Substance: AMOXICILLIN\CLAVULANATE POTASSIUM
     Dosage: 4.8 GRAM, BID
     Route: 048
     Dates: start: 20180214
  84. AMOXICILLIN\CLAVULANATE POTASSIUM [Concomitant]
     Active Substance: AMOXICILLIN\CLAVULANATE POTASSIUM
     Dosage: 625 MILLIGRAM, TID
     Dates: start: 20180301
  85. DEXAMETHASONE [Concomitant]
     Active Substance: DEXAMETHASONE
     Dosage: 40 MILLIGRAM, Q12H
     Route: 048
     Dates: start: 20160722, end: 20160723
  86. HYDROCORTISONE [Concomitant]
     Active Substance: HYDROCORTISONE
     Dosage: 100 MILLIGRAM
     Route: 042
  87. TRASTUZUMAB [Suspect]
     Active Substance: TRASTUZUMAB
     Indication: HER2 positive breast cancer
     Dosage: 1260 MILLIGRAM, QWK
     Route: 042
     Dates: start: 20160907, end: 20170926
  88. TRASTUZUMAB [Suspect]
     Active Substance: TRASTUZUMAB
     Indication: HER2 positive breast cancer
     Dosage: LOADING DOSE, ALSO RECEIVED AS 420 MG FROM 01-JUL-2016.
     Dates: start: 20170224, end: 20170407
  89. TRASTUZUMAB [Suspect]
     Active Substance: TRASTUZUMAB
     Indication: HER2 positive breast cancer
     Dates: start: 20160907, end: 20160926
  90. TRASTUZUMAB [Suspect]
     Active Substance: TRASTUZUMAB
     Indication: HER2 positive breast cancer
     Dosage: 1354.5 MILLIGRAM
     Dates: start: 20170428, end: 20170519
  91. TRASTUZUMAB [Suspect]
     Active Substance: TRASTUZUMAB
     Indication: HER2 positive breast cancer
     Dosage: 1417.5 MILLIGRAM, QWK
     Route: 042
     Dates: start: 20170612, end: 20171228
  92. DOCETAXEL [Suspect]
     Active Substance: DOCETAXEL
     Indication: HER2 positive breast cancer
     Dosage: 110 MILLIGRAM, Q2WK
     Route: 042
     Dates: start: 20160202, end: 20160203
  93. ANASTROZOLE [Suspect]
     Active Substance: ANASTROZOLE
     Indication: Breast cancer metastatic
     Dosage: 1 MILLIGRAM, QD
     Route: 048
     Dates: start: 20160722, end: 20160723
  94. BENZYDAMINE [Concomitant]
     Active Substance: BENZYDAMINE
     Dosage: 130 MG
     Dates: start: 20170727
  95. BENZYDAMINE HYDROCHLORIDE [Suspect]
     Active Substance: BENZYDAMINE HYDROCHLORIDE
     Indication: Product used for unknown indication
     Dates: end: 20170727
  96. BENZYDAMINE HYDROCHLORIDE [Suspect]
     Active Substance: BENZYDAMINE HYDROCHLORIDE
     Indication: Product used for unknown indication
     Dates: start: 20170727
  97. TRASTUZUMAB [Suspect]
     Active Substance: TRASTUZUMAB
     Indication: HER2 positive breast cancer
     Dosage: 452 MG, ONCE EVERY 3 WK
     Route: 042
     Dates: start: 20161111, end: 20170419
  98. TRASTUZUMAB [Suspect]
     Active Substance: TRASTUZUMAB
     Indication: HER2 positive breast cancer
     Dosage: 473 MG, ONCE EVERY 3 WK
     Route: 042
     Dates: start: 20170612
  99. TRASTUZUMAB [Suspect]
     Active Substance: TRASTUZUMAB
     Indication: HER2 positive breast cancer
     Dosage: 420 MG, ONCE EVERY 3 WK
     Route: 042
     Dates: start: 20160602, end: 20170203
  100. TAMOXIFEN [Suspect]
     Active Substance: TAMOXIFEN
     Indication: HER2 positive breast cancer
     Dosage: 20 MG
     Route: 042
     Dates: start: 20170623, end: 20171228
  101. DEXAMETHASONE [Concomitant]
     Active Substance: DEXAMETHASONE
     Dates: start: 20160805, end: 201909
  102. BENZYDAMINE [Concomitant]
     Active Substance: BENZYDAMINE
     Dates: start: 20160723, end: 20160723
  103. ENOXAPARIN [Concomitant]
     Active Substance: ENOXAPARIN
     Route: 058
     Dates: start: 20160723, end: 20180218
  104. RANITIDINE [Concomitant]
     Active Substance: RANITIDINE
     Dosage: 50 MG
     Route: 048
     Dates: start: 20170717, end: 20170718
  105. ANASTROZOLE [Suspect]
     Active Substance: ANASTROZOLE
     Indication: Breast cancer metastatic
     Dosage: 1 MILLIGRAM, QD
     Route: 048
     Dates: start: 20180606
  106. PERTUZUMAB [Suspect]
     Active Substance: PERTUZUMAB
     Indication: Product used for unknown indication
     Dosage: 72.5 MG, Q3W
     Route: 042
     Dates: start: 20170612
  107. PERTUZUMAB [Suspect]
     Active Substance: PERTUZUMAB
     Indication: Product used for unknown indication
     Dosage: 280 MG, Q3W
     Route: 042
     Dates: start: 20180131, end: 20180131
  108. ADO-TRASTUZUMAB EMTANSINE [Suspect]
     Active Substance: ADO-TRASTUZUMAB EMTANSINE
     Indication: HER2 positive breast cancer
     Dosage: 280 MG, ONCE EVERY 3 WK
     Route: 042
     Dates: start: 20160609, end: 20160609
  109. HYDROCORTISONE [Concomitant]
     Active Substance: HYDROCORTISONE
     Route: 042
     Dates: start: 20170616, end: 20170616
  110. LEVETIRACETAM [Concomitant]
     Active Substance: LEVETIRACETAM
     Route: 042
     Dates: start: 20161009, end: 20161017
  111. PIPERACILLIN SODIUM [Concomitant]
     Active Substance: PIPERACILLIN SODIUM
     Indication: Product used for unknown indication
     Dosage: 5 MG
     Dates: start: 20180212, end: 20180214
  112. BENZYDAMINE HYDROCHLORIDE [Suspect]
     Active Substance: BENZYDAMINE HYDROCHLORIDE
     Indication: Product used for unknown indication
     Route: 042
     Dates: start: 20161111, end: 20161111
  113. TRASTUZUMAB [Suspect]
     Active Substance: TRASTUZUMAB
     Indication: Product used for unknown indication
     Dosage: 1323 MG, ONCE EVERY 3 WK
     Dates: start: 20160907, end: 20160926
  114. TRASTUZUMAB [Suspect]
     Active Substance: TRASTUZUMAB
     Indication: Product used for unknown indication
     Dosage: 1260 MG, ONCE EVERY 3 WK
     Dates: start: 20170224
  115. RAMIPRIL [Concomitant]
     Active Substance: RAMIPRIL
     Indication: Product used for unknown indication
     Dates: start: 20160722
  116. SENNA [Concomitant]
     Active Substance: SENNA LEAF\SENNOSIDES\SENNOSIDES A AND B
     Indication: Product used for unknown indication
     Dosage: 15 MG
     Route: 048
     Dates: start: 20160722
  117. DOCETAXEL [Suspect]
     Active Substance: DOCETAXEL
     Indication: Product used for unknown indication
     Dosage: 130 MILLIGRAM EVERY 3 WEEKS (CUMULATIVE DOSE: 130.0 MG)
     Route: 048
     Dates: start: 20160701, end: 20160727
  118. ENOXAPARIN [Concomitant]
     Active Substance: ENOXAPARIN
     Dosage: 1200 MG, QD
     Route: 058
     Dates: start: 20180212, end: 20180212
  119. ENOXAPARIN [Concomitant]
     Active Substance: ENOXAPARIN
     Dosage: 40 MG, QD
     Route: 058
     Dates: start: 20170616, end: 20170623
  120. ALBUTEROL [Concomitant]
     Active Substance: ALBUTEROL
     Dosage: 2.5 MG
     Route: 055
     Dates: start: 20170616, end: 20170618
  121. CHLORPHENIRAMINE MALEATE [Concomitant]
     Active Substance: CHLORPHENIRAMINE MALEATE
     Route: 042
     Dates: start: 20160907, end: 20160907
  122. DOCETAXEL [Suspect]
     Active Substance: DOCETAXEL
     Indication: HER2 positive breast cancer
     Dosage: 108 MG, EVERY 3 WEEKS
     Route: 042
     Dates: start: 20161111, end: 20161111
  123. DOCETAXEL [Suspect]
     Active Substance: DOCETAXEL
     Indication: HER2 positive breast cancer
     Dosage: 110 MG, EVERY 3 WEEKS
     Route: 042
     Dates: start: 20160907, end: 20161021
  124. TRASTUZUMAB [Suspect]
     Active Substance: TRASTUZUMAB
     Indication: HER2 positive breast cancer
     Dosage: LOADING DOSE, ALSO RECEIVED AS 420 MG FROM 01-JUL-2016, 1260 MG
     Route: 042
     Dates: start: 20170224, end: 20170407
  125. TRASTUZUMAB [Suspect]
     Active Substance: TRASTUZUMAB
     Indication: HER2 positive breast cancer
     Dosage: LOADING DOSE, ALSO RECEIVED AS 420 MG FROM 01-JUL-2016.
     Route: 042
     Dates: start: 20161021, end: 20161111
  126. TRASTUZUMAB [Suspect]
     Active Substance: TRASTUZUMAB
     Indication: HER2 positive breast cancer
     Dosage: LOADING DOSE, ALSO RECEIVED AS 420 MG FROM 01-JUL-2016.
     Route: 042
     Dates: start: 20160701, end: 20160727
  127. TRASTUZUMAB [Suspect]
     Active Substance: TRASTUZUMAB
     Indication: HER2 positive breast cancer
     Dosage: LOADING DOSE, ALSO RECEIVED AS 420 MG FROM 01-JUL-2016.441 MG, EVERY 3 WEEKS
     Route: 042
     Dates: start: 20160907, end: 20160926
  128. TRASTUZUMAB [Suspect]
     Active Substance: TRASTUZUMAB
     Indication: HER2 positive breast cancer
     Dosage: LOADING DOSE, ALSO RECEIVED AS 420 MG FROM 01-JUL-2016.
     Route: 042
     Dates: start: 20161111, end: 20170519
  129. TRASTUZUMAB [Suspect]
     Active Substance: TRASTUZUMAB
     Indication: HER2 positive breast cancer
     Dosage: LOADING DOSE, ALSO RECEIVED AS 420 MG FROM 01-JUL-2016.
     Route: 042
     Dates: start: 20161202, end: 20170203
  130. TRASTUZUMAB [Suspect]
     Active Substance: TRASTUZUMAB
     Indication: HER2 positive breast cancer
     Dosage: LOADING DOSE, ALSO RECEIVED AS 420 MG FROM 01-JUL-2016.
     Route: 042
     Dates: start: 20170519, end: 20171228
  131. TAMOXIFEN [Suspect]
     Active Substance: TAMOXIFEN
     Indication: HER2 positive breast cancer
     Dosage: 20 MG, 1X/DAY, MOST RECENT DOSE ON 05/JUN/2018
     Route: 048
     Dates: start: 20180213, end: 20180605
  132. PERTUZUMAB [Suspect]
     Active Substance: PERTUZUMAB
     Indication: HER2 positive breast cancer
     Dosage: 840 MILLIGRAM, QD (LOADING DOSE)
     Route: 042
     Dates: start: 20160609, end: 20160609
  133. ENOXAPARIN SODIUM [Concomitant]
     Active Substance: ENOXAPARIN SODIUM
     Route: 058
     Dates: start: 20160723, end: 20160723
  134. TRASTUZUMAB [Suspect]
     Active Substance: TRASTUZUMAB
     Indication: HER2 positive breast cancer
     Dosage: 451.5 MG, TIW
     Route: 042
     Dates: start: 20170428, end: 20170519
  135. TRASTUZUMAB [Suspect]
     Active Substance: TRASTUZUMAB
     Indication: HER2 positive breast cancer
     Dosage: 472.5 MG, TIW
     Route: 042
     Dates: start: 20170612, end: 20171228
  136. TRASTUZUMAB [Suspect]
     Active Substance: TRASTUZUMAB
     Indication: HER2 positive breast cancer
     Dosage: 420 MG, EVERY 3 WEEKS
     Route: 042
     Dates: start: 20160701, end: 20171228
  137. AMOXICILLIN\CLAVULANATE POTASSIUM [Concomitant]
     Active Substance: AMOXICILLIN\CLAVULANATE POTASSIUM
     Dosage: DOSE 1.2 GRAM, BID
     Route: 042
     Dates: start: 20180214, end: 20180214
  138. AMOXICILLIN\CLAVULANATE POTASSIUM [Concomitant]
     Active Substance: AMOXICILLIN\CLAVULANATE POTASSIUM
     Dosage: 1875 MILLIGRAM, QD
     Dates: start: 20180215, end: 20180301
  139. DEXAMETHASONE [Concomitant]
     Active Substance: DEXAMETHASONE
     Dosage: 1 DOSAGE FORM, QD
     Route: 048
     Dates: start: 20160805, end: 201609
  140. DEXAMETHASONE [Concomitant]
     Active Substance: DEXAMETHASONE
     Dosage: 4 MILLIGRAM, BID
     Route: 048
     Dates: start: 20160722, end: 20160723
  141. DEXAMETHASONE [Concomitant]
     Active Substance: DEXAMETHASONE
     Route: 048
     Dates: start: 20160610, end: 20160611
  142. DEXAMETHASONE [Concomitant]
     Active Substance: DEXAMETHASONE
     Dosage: 2 MILLIGRAM, QD
     Route: 048
     Dates: start: 20170902, end: 20180110
  143. DEXAMETHASONE [Concomitant]
     Active Substance: DEXAMETHASONE
     Dosage: 4 MILLIGRAM, BID
     Route: 048
     Dates: start: 20170616, end: 20170902
  144. DEXAMETHASONE [Concomitant]
     Active Substance: DEXAMETHASONE
     Dosage: 4 MILLIGRAM, QD
     Route: 048
     Dates: start: 20180110
  145. DEXAMETHASONE [Concomitant]
     Active Substance: DEXAMETHASONE
     Route: 042
     Dates: start: 20170616, end: 20170616
  146. DEXAMETHASONE [Concomitant]
     Active Substance: DEXAMETHASONE
     Dosage: 2 MILLIGRAM, QD
     Route: 048
     Dates: start: 20200111
  147. ENOXAPARIN [Concomitant]
     Active Substance: ENOXAPARIN
     Dosage: 40 MILLIGRAM, QD
     Route: 058
     Dates: start: 20180105, end: 20180117
  148. ENOXAPARIN [Concomitant]
     Active Substance: ENOXAPARIN
     Dosage: 40 MILLIGRAM, QD
     Route: 058
     Dates: start: 20180214, end: 20180214
  149. ENOXAPARIN [Concomitant]
     Active Substance: ENOXAPARIN
     Dosage: 40 MILLIGRAM, QD
     Route: 058
     Dates: start: 20160817, end: 20160914
  150. GENTAMICIN [Concomitant]
     Active Substance: GENTAMICIN
     Dosage: 375 MILLIGRAM, QD
     Route: 042
     Dates: start: 20161009, end: 20161009
  151. HYDROCORTISONE [Concomitant]
     Active Substance: HYDROCORTISONE
     Dosage: 100 MILLIGRAM
     Route: 042
     Dates: start: 20160928
  152. LANSOPRAZOLE [Concomitant]
     Active Substance: LANSOPRAZOLE
     Route: 048
     Dates: start: 20161010
  153. LANSOPRAZOLE [Concomitant]
     Active Substance: LANSOPRAZOLE
     Dosage: 30 MILLIGRAM, QD
     Route: 048
     Dates: start: 20160722, end: 20160724
  154. LEVETIRACETAM [Concomitant]
     Active Substance: LEVETIRACETAM
     Dosage: 500 MILLIGRAM, TWO TIMES A DAY
     Route: 048
     Dates: start: 20170617, end: 20170617
  155. LEVOMEPROMAZINE [Concomitant]
     Active Substance: LEVOMEPROMAZINE
     Dosage: 6 MILLIGRAM, QD
     Dates: start: 20170908, end: 20170925
  156. METOCLOPRAMIDE [Concomitant]
     Active Substance: METOCLOPRAMIDE
     Dosage: 10 MILLIGRAM
     Route: 048
     Dates: start: 20180131
  157. ONDANSETRON [Concomitant]
     Active Substance: ONDANSETRON
     Dosage: 8 MG, TID
     Route: 048
     Dates: start: 20170616, end: 20170626
  158. ACETAMINOPHEN [Concomitant]
     Active Substance: ACETAMINOPHEN
     Dosage: 1 GRAM, QD
     Route: 048
     Dates: start: 20160722, end: 20160724
  159. ACETAMINOPHEN [Concomitant]
     Active Substance: ACETAMINOPHEN
     Route: 048
     Dates: start: 20170903
  160. ACETAMINOPHEN [Concomitant]
     Active Substance: ACETAMINOPHEN
     Route: 048
     Dates: start: 20160723, end: 20160724
  161. DOCETAXEL [Suspect]
     Active Substance: DOCETAXEL
     Indication: Breast cancer metastatic
     Dosage: 110 MILLIGRAM, Q3WK
     Route: 042
     Dates: start: 20160907, end: 20161021
  162. TRASTUZUMAB [Suspect]
     Active Substance: TRASTUZUMAB
     Indication: Product used for unknown indication
  163. TRASTUZUMAB [Suspect]
     Active Substance: TRASTUZUMAB
     Indication: Product used for unknown indication
     Dosage: 472.5 MG, QW3
     Route: 042
     Dates: start: 20170612
  164. METOCLOPRAMIDE [Concomitant]
     Active Substance: METOCLOPRAMIDE
     Dosage: 10 MILLIGRAM
     Route: 042
     Dates: start: 20180106, end: 20180106
  165. TRASTUZUMAB [Suspect]
     Active Substance: TRASTUZUMAB
     Indication: Product used for unknown indication
     Dosage: 280 MILLIGRAM, EVERY 3 WEEKS
     Dates: start: 20180131, end: 20180131
  166. TRASTUZUMAB [Suspect]
     Active Substance: TRASTUZUMAB
     Indication: HER2 positive breast cancer
     Dosage: 420 MG
     Route: 042
     Dates: start: 20160701, end: 20160727
  167. ENOXAPARIN SODIUM [Concomitant]
     Active Substance: ENOXAPARIN SODIUM
     Route: 058
     Dates: start: 20180105, end: 20180117
  168. PIPERACILLIN SODIUM\TAZOBACTAM SODIUM [Concomitant]
     Active Substance: PIPERACILLIN SODIUM\TAZOBACTAM SODIUM
     Dosage: 4.5 G
     Dates: start: 20180212, end: 20180214
  169. TRASTUZUMAB [Suspect]
     Active Substance: TRASTUZUMAB
     Indication: HER2 positive breast cancer
     Route: 042
     Dates: start: 20160701
  170. DOCETAXEL [Suspect]
     Active Substance: DOCETAXEL
     Indication: HER2 positive breast cancer
     Dosage: 130 MG, EVERY 3 WEEKS
     Route: 042
     Dates: start: 20161111, end: 20161111
  171. TRASTUZUMAB [Suspect]
     Active Substance: TRASTUZUMAB
     Indication: HER2 positive breast cancer
     Dosage: 441 MG, ALSO RECEIVED 1260 MG
     Dates: start: 20160907, end: 20160926
  172. TRASTUZUMAB [Suspect]
     Active Substance: TRASTUZUMAB
     Indication: HER2 positive breast cancer
     Dosage: 451.5 MG
     Route: 042
     Dates: start: 20161202, end: 20170203
  173. TRASTUZUMAB [Suspect]
     Active Substance: TRASTUZUMAB
     Indication: HER2 positive breast cancer
     Dates: start: 20170224, end: 20170407
  174. TRASTUZUMAB [Suspect]
     Active Substance: TRASTUZUMAB
     Indication: HER2 positive breast cancer
     Dosage: END DATE 2020-07-27
     Route: 041
     Dates: start: 20160701
  175. DEXAMETHASONE [Concomitant]
     Active Substance: DEXAMETHASONE
     Dosage: 2 MG, 1X/DAY
     Route: 042
     Dates: start: 20180111
  176. DOCETAXEL [Suspect]
     Active Substance: DOCETAXEL
     Indication: HER2 positive breast cancer
     Dosage: 110 MILLIGRAM, Q3WK
     Route: 042
     Dates: start: 20160907, end: 20161021
  177. TRASTUZUMAB [Suspect]
     Active Substance: TRASTUZUMAB
     Indication: Product used for unknown indication
     Dosage: 420 MG, ONCE EVERY 3 WK
     Route: 042
  178. TRASTUZUMAB [Suspect]
     Active Substance: TRASTUZUMAB
     Indication: Product used for unknown indication
     Dosage: 451.5 MG, EVERY 3 WEEKS, 452 MG
     Route: 042
     Dates: start: 20180131
  179. TRASTUZUMAB [Suspect]
     Active Substance: TRASTUZUMAB
     Indication: Product used for unknown indication
     Dosage: 473 MG, ONCE EVERY 3 WK, 451.5 MG
     Route: 042
     Dates: start: 20170428, end: 20170519
  180. TRASTUZUMAB [Suspect]
     Active Substance: TRASTUZUMAB
     Indication: Product used for unknown indication
     Dosage: 451.5 MG, EVERY 3 WEEKS
     Route: 042
     Dates: start: 20161111, end: 20170519
  181. DOCETAXEL [Suspect]
     Active Substance: DOCETAXEL
     Indication: HER2 positive breast cancer
     Dosage: 500 MG, BID
     Route: 058
     Dates: start: 20170617
  182. TRASTUZUMAB [Suspect]
     Active Substance: TRASTUZUMAB
     Indication: Product used for unknown indication
     Dosage: 420 MG, ONCE EVERY 3 WK
     Route: 042
     Dates: start: 20170224, end: 20170407
  183. TRASTUZUMAB [Suspect]
     Active Substance: TRASTUZUMAB
     Indication: Product used for unknown indication
     Dosage: 452 MG, ONCE EVERY 3 WK
     Route: 042
     Dates: start: 20170519, end: 20171228
  184. TRASTUZUMAB [Suspect]
     Active Substance: TRASTUZUMAB
     Indication: Product used for unknown indication
     Dosage: LOADING DOSE
     Route: 042
     Dates: start: 20170612, end: 20171228
  185. TRASTUZUMAB [Suspect]
     Active Substance: TRASTUZUMAB
     Indication: Product used for unknown indication
     Dosage: 567 MILLIGRAM
     Route: 042
     Dates: start: 20160609, end: 20160609
  186. TRASTUZUMAB [Suspect]
     Active Substance: TRASTUZUMAB
     Indication: Product used for unknown indication
     Dosage: 441 MILLIGRAM
     Dates: start: 20160202, end: 20170203
  187. DEXAMETHASONE [Concomitant]
     Active Substance: DEXAMETHASONE
     Dosage: 1 DOSAGE FORM, QD
     Route: 048
     Dates: start: 20190805, end: 201909
  188. ANASTROZOLE [Suspect]
     Active Substance: ANASTROZOLE
     Indication: HER2 positive breast cancer
     Dosage: 1 MILLIGRAM, QD
     Route: 048
     Dates: start: 20180606, end: 20190904
  189. DOCETAXEL [Suspect]
     Active Substance: DOCETAXEL
     Indication: HER2 positive breast cancer
     Dosage: 1 NG
     Route: 042
     Dates: start: 20170616
  190. TRASTUZUMAB [Suspect]
     Active Substance: TRASTUZUMAB
     Indication: HER2 positive breast cancer
     Dates: start: 20161202, end: 20170203
  191. TRASTUZUMAB [Suspect]
     Active Substance: TRASTUZUMAB
     Indication: HER2 positive breast cancer
     Dates: start: 20160907, end: 20160926
  192. TRASTUZUMAB [Suspect]
     Active Substance: TRASTUZUMAB
     Indication: Product used for unknown indication
     Dosage: 452 MG, ONCE EVERY 3 WK
     Route: 042
     Dates: start: 20170428, end: 20170519
  193. TRASTUZUMAB [Suspect]
     Active Substance: TRASTUZUMAB
     Indication: Product used for unknown indication
     Dosage: 452 MG, ONCE EVERY 3 WK
     Route: 042
     Dates: start: 20161111, end: 20170519
  194. TRASTUZUMAB [Suspect]
     Active Substance: TRASTUZUMAB
     Indication: Product used for unknown indication
     Dosage: 452 MG, ONCE EVERY 3 WK
     Route: 042
     Dates: start: 20160701, end: 20160727
  195. TRASTUZUMAB [Suspect]
     Active Substance: TRASTUZUMAB
     Indication: Product used for unknown indication
     Route: 042
     Dates: start: 20160907, end: 20160926
  196. TRASTUZUMAB [Suspect]
     Active Substance: TRASTUZUMAB
     Indication: Product used for unknown indication
     Dosage: 452 MG
     Route: 042
     Dates: start: 20161202, end: 20170203
  197. TRASTUZUMAB [Suspect]
     Active Substance: TRASTUZUMAB
     Indication: Product used for unknown indication
     Route: 042
     Dates: start: 20180831
  198. MORPHINE SULFATE [Concomitant]
     Active Substance: MORPHINE SULFATE
     Route: 048
     Dates: start: 20180213, end: 20180217
  199. TRIMETHOPRIM [Concomitant]
     Active Substance: TRIMETHOPRIM
     Route: 048
     Dates: start: 20180131, end: 20180131
  200. TRASTUZUMAB [Suspect]
     Active Substance: TRASTUZUMAB
     Indication: HER2 positive breast cancer
     Dosage: 452 MG, ONCE EVERY 3 WKINJECTION, POWDER, LYOPHILIZED, FOR SOLUTION
     Route: 042
     Dates: start: 20161021, end: 20161111
  201. PERTUZUMAB [Suspect]
     Active Substance: PERTUZUMAB
     Indication: Product used for unknown indication
     Dosage: INFUSION, SOLUTION
     Route: 042
     Dates: start: 20160701
  202. ZOPICLONE [Concomitant]
     Active Substance: ZOPICLONE
     Route: 048
     Dates: start: 20170618, end: 20170619
  203. ENOXAPARIN SODIUM [Concomitant]
     Active Substance: ENOXAPARIN SODIUM
     Dates: start: 20160914
  204. CYCLIZINE [Concomitant]
     Active Substance: CYCLIZINE
     Dosage: 50 MILLIGRAM, TID (50 MILLIGRAM 3/DAY, START 02-SEP-2017)
     Route: 048
     Dates: start: 20170902
  205. DEXAMETHASONE [Concomitant]
     Active Substance: DEXAMETHASONE
     Dosage: 8 MILLIGRAM, QD
     Route: 048
     Dates: start: 20160610, end: 20160610
  206. LEVOMEPROMAZINE [Concomitant]
     Active Substance: LEVOMEPROMAZINE
     Dosage: 6.25 MG
     Route: 058
     Dates: start: 20170617, end: 20170617
  207. ONDANSETRON [Concomitant]
     Active Substance: ONDANSETRON
     Indication: Vomiting
     Dosage: 8 MILLIGRAM 3/D
     Route: 048
     Dates: start: 20170902
  208. ONDANSETRON [Concomitant]
     Active Substance: ONDANSETRON
     Indication: Vomiting
     Dosage: 8 MILLIGRAM 3/D
     Route: 048
     Dates: start: 20170616, end: 20170626
  209. OSELTAMIVIR [Concomitant]
     Active Substance: OSELTAMIVIR
     Dosage: 15 MILLIGRAM, BID
     Route: 048
     Dates: start: 20180213, end: 20180217
  210. OSELTAMIVIR [Concomitant]
     Active Substance: OSELTAMIVIR
     Dosage: 15 MILLIGRAM, BID
     Route: 048
     Dates: start: 20180213, end: 20180217
  211. TRIMETHOPRIM [Concomitant]
     Active Substance: TRIMETHOPRIM
     Route: 042
     Dates: start: 20160811, end: 20160816
  212. DOCETAXEL [Suspect]
     Active Substance: DOCETAXEL
     Dosage: Q3WK, INTRALESIONAL
     Dates: start: 20160907, end: 20160907
  213. DEXAMETHASONE [Concomitant]
     Active Substance: DEXAMETHASONE
     Route: 042
     Dates: start: 20181011
  214. TRASTUZUMAB [Suspect]
     Active Substance: TRASTUZUMAB
     Indication: Product used for unknown indication
     Dosage: END DATE 27-JUL-2020
     Route: 042
     Dates: start: 20160701
  215. DOCETAXEL [Suspect]
     Active Substance: DOCETAXEL
     Indication: HER2 positive breast cancer
     Route: 042
     Dates: start: 20160727
  216. TRASTUZUMAB [Suspect]
     Active Substance: TRASTUZUMAB
     Indication: HER2 positive breast cancer
     Dosage: LOADING DOSE, 473 MG
     Dates: start: 20170519, end: 20171228
  217. TRASTUZUMAB [Suspect]
     Active Substance: TRASTUZUMAB
     Indication: HER2 positive breast cancer
     Route: 042
     Dates: start: 20161021, end: 20161111
  218. TRASTUZUMAB [Suspect]
     Active Substance: TRASTUZUMAB
     Indication: HER2 positive breast cancer
     Dosage: ALSO RECEIVED 1354.5 MG
     Route: 042
     Dates: start: 20161111, end: 20170519
  219. TRASTUZUMAB [Suspect]
     Active Substance: TRASTUZUMAB
     Indication: HER2 positive breast cancer
     Route: 042
     Dates: start: 20160601
  220. HYDROCORTISONE [Concomitant]
     Active Substance: HYDROCORTISONE
     Dosage: 100 MILLIGRAM
     Route: 042
     Dates: start: 20170616, end: 20170616
  221. SODIUM CHLORIDE [Concomitant]
     Active Substance: SODIUM CHLORIDE
     Dosage: 5 MILLILITER, Q4WK
     Route: 055
     Dates: start: 20180105, end: 20180105
  222. DOCETAXEL [Suspect]
     Active Substance: DOCETAXEL
     Indication: Breast cancer metastatic
     Dosage: 130 MILLIGRAM, Q3WK
     Route: 042
     Dates: start: 20160727
  223. ENOXAPARIN [Concomitant]
     Active Substance: ENOXAPARIN
     Dates: start: 20160825, end: 20160914
  224. ENOXAPARIN [Concomitant]
     Active Substance: ENOXAPARIN
     Dates: start: 20160723, end: 20160723
  225. ENOXAPARIN [Concomitant]
     Active Substance: ENOXAPARIN
     Dosage: 120 MILLIGRAM, QD
     Route: 058
  226. TRASTUZUMAB [Suspect]
     Active Substance: TRASTUZUMAB
     Indication: HER2 positive breast cancer
     Dates: start: 20170612
  227. TRASTUZUMAB [Suspect]
     Active Substance: TRASTUZUMAB
     Indication: HER2 positive breast cancer
     Dosage: 1417.5 MILLIGRAM, QWK, 1418 MG
     Dates: start: 20170612, end: 20171228
  228. ADO-TRASTUZUMAB EMTANSINE [Suspect]
     Active Substance: ADO-TRASTUZUMAB EMTANSINE
     Indication: HER2 positive breast cancer
     Dosage: 567 MILLIGRAM, QD, INTRAVENOUS BOLUS
     Route: 042
     Dates: start: 20160609, end: 20160609
  229. ADO-TRASTUZUMAB EMTANSINE [Suspect]
     Active Substance: ADO-TRASTUZUMAB EMTANSINE
     Indication: HER2 positive breast cancer
     Dosage: 441 MILLIGRAM, Q3WK, INTRAVENOUS BOLUS
     Route: 042
     Dates: start: 20160202, end: 20160203
  230. ADO-TRASTUZUMAB EMTANSINE [Suspect]
     Active Substance: ADO-TRASTUZUMAB EMTANSINE
     Indication: HER2 positive breast cancer
     Dosage: 420 MILLIGRAM, Q3WK, INTRAVENOUS BOLUS
     Route: 042
     Dates: start: 20160907, end: 20160926
  231. ADO-TRASTUZUMAB EMTANSINE [Suspect]
     Active Substance: ADO-TRASTUZUMAB EMTANSINE
     Indication: HER2 positive breast cancer
     Dosage: 430 MG, ONCE EVERY 3 WK
     Route: 042
     Dates: start: 20170724, end: 20180407
  232. BENZYDAMINE [Concomitant]
     Active Substance: BENZYDAMINE
     Dates: start: 20160825, end: 20160914
  233. PIPERACILLIN SODIUM\TAZOBACTAM SODIUM [Concomitant]
     Active Substance: PIPERACILLIN SODIUM\TAZOBACTAM SODIUM
     Dates: start: 20180212, end: 20180214
  234. DOCETAXEL [Suspect]
     Active Substance: DOCETAXEL
     Indication: Product used for unknown indication
     Route: 042
     Dates: start: 20160616

REACTIONS (16)
  - Deep vein thrombosis [Not Recovered/Not Resolved]
  - Condition aggravated [Fatal]
  - Ejection fraction decreased [Fatal]
  - Disease progression [Fatal]
  - Nausea [Fatal]
  - Pain in jaw [Fatal]
  - Excessive eye blinking [Fatal]
  - Diarrhoea [Fatal]
  - Hyponatraemia [Fatal]
  - Pneumonia [Fatal]
  - Dyspnoea [Fatal]
  - Seizure [Fatal]
  - Chest pain [Fatal]
  - Vomiting [Fatal]
  - Back pain [Fatal]
  - Lower respiratory tract infection [Fatal]

NARRATIVE: CASE EVENT DATE: 20160722
